FAERS Safety Report 20070448 (Version 2)
Quarter: 2021Q4

REPORT INFORMATION
  Report Type: Spontaneous
  Country: US (occurrence: US)
  Receive Date: 20211115
  Receipt Date: 20211222
  Transmission Date: 20220303
  Serious: Yes (Disabling, Other)
  Sender: FDA-Public Use
  Company Number: US-PFIZER INC-202101146924

PATIENT
  Age: 77 Year
  Sex: Male

DRUGS (2)
  1. XELJANZ XR [Suspect]
     Active Substance: TOFACITINIB CITRATE
     Indication: Rheumatoid arthritis
     Dosage: 11 MG, DAILY
     Route: 048
     Dates: start: 20210901
  2. PREDNISONE [Concomitant]
     Active Substance: PREDNISONE
     Indication: Pain
     Dosage: UNK

REACTIONS (8)
  - Retinitis pigmentosa [Unknown]
  - Blindness [Unknown]
  - Hypoacusis [Unknown]
  - Product dose omission issue [Unknown]
  - Peripheral swelling [Unknown]
  - Cardiac disorder [Unknown]
  - Pain [Unknown]
  - Increased appetite [Unknown]

NARRATIVE: CASE EVENT DATE: 20210101
